FAERS Safety Report 7418137-1 (Version None)
Quarter: 2011Q2

REPORT INFORMATION
  Report Type: 
  Country: None (occurrence: None)
  Receive Date: 20110415
  Receipt Date: 20110406
  Transmission Date: 20111010
  Serious: Yes (Death, Other)
  Sender: FDA-Public Use
  Company Number: US-BAXTER-2011BH003688

PATIENT
  Age: 32 Year
  Sex: Male
  Weight: 106 kg

DRUGS (17)
  1. RESTORIL [Concomitant]
     Indication: PRODUCT USED FOR UNKNOWN INDICATION
     Route: 065
  2. SENSIPAR [Concomitant]
     Indication: PRODUCT USED FOR UNKNOWN INDICATION
     Route: 065
  3. EPOGEN [Concomitant]
     Indication: PRODUCT USED FOR UNKNOWN INDICATION
     Route: 065
  4. ALBUTEROL [Concomitant]
     Indication: PRODUCT USED FOR UNKNOWN INDICATION
     Route: 055
  5. COLACE [Concomitant]
     Indication: PRODUCT USED FOR UNKNOWN INDICATION
     Route: 065
  6. METHADONE [Concomitant]
     Indication: PRODUCT USED FOR UNKNOWN INDICATION
     Route: 065
  7. VENOFER [Concomitant]
     Indication: PRODUCT USED FOR UNKNOWN INDICATION
     Route: 065
  8. ZEMPLAR [Concomitant]
     Indication: PRODUCT USED FOR UNKNOWN INDICATION
     Route: 065
  9. HEPARIN SODIUM INJECTION [Suspect]
     Indication: HAEMODIALYSIS
     Route: 042
     Dates: start: 20080221, end: 20080221
  10. HEPARIN SODIUM INJECTION [Suspect]
     Route: 010
     Dates: start: 20080221, end: 20080221
  11. RENAGEL [Concomitant]
     Indication: PRODUCT USED FOR UNKNOWN INDICATION
     Route: 048
  12. HEPARIN SODIUM INJECTION [Suspect]
     Route: 042
     Dates: start: 20080221, end: 20080221
  13. HEPARIN SODIUM INJECTION [Suspect]
     Route: 042
     Dates: start: 20080221, end: 20080221
  14. FENTANYL [Concomitant]
     Indication: PRODUCT USED FOR UNKNOWN INDICATION
     Route: 061
  15. HEPARIN SODIUM INJECTION [Suspect]
     Route: 042
     Dates: start: 20080221
  16. BENADRYL [Concomitant]
     Indication: PRODUCT USED FOR UNKNOWN INDICATION
     Route: 065
  17. NEPHROCAPS [Concomitant]
     Indication: PRODUCT USED FOR UNKNOWN INDICATION
     Route: 048

REACTIONS (9)
  - MULTI-ORGAN FAILURE [None]
  - SEPSIS [None]
  - VENTRICULAR FIBRILLATION [None]
  - CARDIAC ARREST [None]
  - DYSPNOEA [None]
  - SLOW RESPONSE TO STIMULI [None]
  - MENTAL STATUS CHANGES [None]
  - PULSELESS ELECTRICAL ACTIVITY [None]
  - HYPOTENSION [None]
